FAERS Safety Report 22187890 (Version 1)
Quarter: 2023Q2

REPORT INFORMATION
  Report Type: Other
  Country: US (occurrence: US)
  Receive Date: 20230408
  Receipt Date: 20230408
  Transmission Date: 20230722
  Serious: Yes (Death)
  Sender: FDA-Public Use
  Company Number: US-ALVOGEN-2023089948

PATIENT
  Age: 39 Year
  Sex: Male

DRUGS (12)
  1. GABAPENTIN [Suspect]
     Active Substance: GABAPENTIN
     Indication: Suicide attempt
  2. AMITRIPTYLINE [Suspect]
     Active Substance: AMITRIPTYLINE
     Indication: Suicide attempt
  3. OXCARBAZEPINE [Suspect]
     Active Substance: OXCARBAZEPINE
     Indication: Suicide attempt
  4. DULOXETINE [Suspect]
     Active Substance: DULOXETINE
     Indication: Suicide attempt
  5. PROPRANOLOL [Suspect]
     Active Substance: PROPRANOLOL HYDROCHLORIDE
     Indication: Suicide attempt
  6. BUSPIRONE [Suspect]
     Active Substance: BUSPIRONE HYDROCHLORIDE
     Indication: Suicide attempt
  7. LURASIDONE [Suspect]
     Active Substance: LURASIDONE
     Indication: Suicide attempt
  8. RIZATRIPTAN [Suspect]
     Active Substance: RIZATRIPTAN
     Indication: Suicide attempt
  9. LINACLOTIDE [Suspect]
     Active Substance: LINACLOTIDE
     Indication: Suicide attempt
  10. DICLOFENAC [Suspect]
     Active Substance: DICLOFENAC
     Indication: Suicide attempt
  11. METFORMIN [Suspect]
     Active Substance: METFORMIN HYDROCHLORIDE
     Indication: Suicide attempt
  12. INSULIN NOS [Suspect]
     Active Substance: INSULIN NOS
     Indication: Suicide attempt

REACTIONS (1)
  - Completed suicide [Fatal]
